FAERS Safety Report 20346810 (Version 1)
Quarter: 2022Q1

REPORT INFORMATION
  Report Type: Spontaneous
  Country: US (occurrence: US)
  Receive Date: 20220118
  Receipt Date: 20220118
  Transmission Date: 20220424
  Serious: No
  Sender: FDA-Public Use
  Company Number: US-PFIZER INC-202200034569

PATIENT
  Age: 4 Decade
  Sex: Female

DRUGS (1)
  1. PAXLOVID [Suspect]
     Active Substance: NIRMATRELVIR\RITONAVIR
     Indication: COVID-19
     Dosage: THREE IN THE MORNING, TWELVE AND HALF HOURS LATER THREE AT NIGHT
     Dates: start: 20220108, end: 20220109

REACTIONS (3)
  - Heart rate decreased [Unknown]
  - Headache [Unknown]
  - Ageusia [Unknown]

NARRATIVE: CASE EVENT DATE: 20220108
